FAERS Safety Report 4624163-8 (Version None)
Quarter: 2005Q1

REPORT INFORMATION
  Report Type: 
  Country: None (occurrence: None)
  Receive Date: 20050331
  Receipt Date: 20050207
  Transmission Date: 20050727
  Serious: Yes (Death, Life-Threatening)
  Sender: FDA-Public Use
  Company Number: D01200500873

PATIENT

DRUGS (11)
  1. FONDAPARINUX SODIUM [Suspect]
     Dosage: 2.5MG PER DAY
     Route: 058
     Dates: start: 20050126, end: 20050127
  2. ASPIRIN [Concomitant]
  3. ENOXAPARIN [Concomitant]
     Dosage: 1MGK TWICE PER DAY
     Route: 058
     Dates: end: 20050126
  4. TIROFIBAN HYDROCHLORIDE [Concomitant]
  5. AMIODARONE [Concomitant]
  6. NITRATES [Concomitant]
  7. LEVODOPA [Concomitant]
  8. FUROSEMIDE [Concomitant]
  9. INSULIN [Concomitant]
  10. SIMVASTATIN [Concomitant]
  11. CEFOTAX [Concomitant]

REACTIONS (1)
  - RESPIRATORY ARREST [None]
